FAERS Safety Report 5198904-8 (Version None)
Quarter: 2006Q4

REPORT INFORMATION
  Report Type: 
  Country: None (occurrence: None)
  Receive Date: 20060925
  Receipt Date: 20060630
  Transmission Date: 20070319
  Serious: Yes (Hospitalization)
  Sender: FDA-Public Use
  Company Number: PHEH2006US08491

PATIENT
  Age: 55 Year
  Sex: Female

DRUGS (9)
  1. MYFORTIC(MYCOPHENOLATE ACID) TABLET [Suspect]
     Indication: LIVER TRANSPLANT
     Dosage: 360 MG, QD, ORAL
     Route: 048
     Dates: start: 20060421, end: 20060512
  2. PEGINTERFERON ALFA-2A (PEGINTERFERON ALFA-2A) [Suspect]
     Indication: HEPATITIS C
     Dosage: 30 UG, QW, SUBCUTANEOUS
     Route: 058
     Dates: start: 20060504
  3. RIBAVIRIN [Suspect]
     Indication: HEPATITIS C
     Dosage: 400 MG, QD, ORAL
     Route: 048
     Dates: start: 20060504
  4. LOPRESSOR [Concomitant]
  5. PREVACID [Concomitant]
  6. BACTRIM [Concomitant]
  7. XANAX [Concomitant]
  8. PROGRAF [Concomitant]
  9. LORTAB [Concomitant]

REACTIONS (7)
  - ANAEMIA [None]
  - DEHYDRATION [None]
  - DIARRHOEA [None]
  - HEADACHE [None]
  - VISION BLURRED [None]
  - VOMITING [None]
  - WHITE BLOOD CELL COUNT DECREASED [None]
